FAERS Safety Report 19572261 (Version 2)
Quarter: 2021Q3

REPORT INFORMATION
  Report Type: Spontaneous
  Country: GB (occurrence: GB)
  Receive Date: 20210716
  Receipt Date: 20210917
  Transmission Date: 20211014
  Serious: Yes (Other)
  Sender: FDA-Public Use
  Company Number: GB-BAYER-2021-174423

PATIENT
  Age: 30 Year
  Sex: Female
  Weight: 120 kg

DRUGS (1)
  1. MIRENA [Suspect]
     Active Substance: LEVONORGESTREL
     Indication: ENDOMETRIOSIS
     Dosage: 20 ?G, CONT
     Route: 015
     Dates: start: 20210607, end: 202107

REACTIONS (2)
  - Psoriasis [Not Recovered/Not Resolved]
  - Condition aggravated [Unknown]
